FAERS Safety Report 16367147 (Version 1)
Quarter: 2019Q2

REPORT INFORMATION
  Report Type: Spontaneous
  Country: US (occurrence: US)
  Receive Date: 20190529
  Receipt Date: 20190529
  Transmission Date: 20190711
  Serious: Yes (Other)
  Sender: FDA-Public Use
  Company Number: US-PFIZER INC-2016582981

PATIENT
  Age: 52 Year

DRUGS (2)
  1. VIAGRA [Suspect]
     Active Substance: SILDENAFIL CITRATE
     Indication: HYPOGONADISM MALE
  2. VIAGRA [Suspect]
     Active Substance: SILDENAFIL CITRATE
     Indication: ERECTILE DYSFUNCTION
     Dosage: 100 MG, AS NEEDED (TAKE 1 TABLET DAILY, 1 HOUR BEFORE NEEDED)
     Route: 048
     Dates: start: 20161209

REACTIONS (1)
  - Cerebrovascular accident [Unknown]
